FAERS Safety Report 25405715 (Version 1)
Quarter: 2025Q2

REPORT INFORMATION
  Report Type: Spontaneous
  Country: US (occurrence: US)
  Receive Date: 20250606
  Receipt Date: 20250606
  Transmission Date: 20250716
  Serious: Yes (Other)
  Sender: AUROBINDO
  Company Number: US-MLMSERVICE-20250515-PI508128-00270-1

PATIENT
  Age: 71 Year
  Sex: Male

DRUGS (3)
  1. METHYLPREDNISOLONE SODIUM SUCCINATE [Suspect]
     Active Substance: METHYLPREDNISOLONE SODIUM SUCCINATE
     Indication: Evidence based treatment
     Dosage: 125 MILLIGRAM, ONCE A DAY (HIGH-DOSE, DOSE DECREASED BY 25% EVERY 3 DAYS)
     Route: 042
     Dates: start: 202210, end: 202210
  2. METHYLPREDNISOLONE SODIUM SUCCINATE [Suspect]
     Active Substance: METHYLPREDNISOLONE SODIUM SUCCINATE
     Dosage: 100 MILLIGRAM, ONCE A DAY
     Route: 042
     Dates: start: 202210, end: 202210
  3. METHYLPREDNISOLONE SODIUM SUCCINATE [Suspect]
     Active Substance: METHYLPREDNISOLONE SODIUM SUCCINATE
     Dosage: 70 MILLIGRAM, ONCE A DAY
     Route: 042
     Dates: start: 202210, end: 202210

REACTIONS (5)
  - Hyperglycaemia [Recovered/Resolved]
  - Delirium [Unknown]
  - Condition aggravated [Unknown]
  - Food refusal [Unknown]
  - Paranoia [Unknown]

NARRATIVE: CASE EVENT DATE: 20221024
